FAERS Safety Report 4369652-9 (Version None)
Quarter: 2004Q2

REPORT INFORMATION
  Report Type: 
  Country: None (occurrence: None)
  Receive Date: 20040528
  Receipt Date: 20040512
  Transmission Date: 20050107
  Serious: Yes (Death, Life-Threatening, Other)
  Sender: FDA-Public Use
  Company Number: A-US2003-02616

PATIENT
  Age: 46 Year
  Sex: Male
  Weight: 71.2 kg

DRUGS (5)
  1. TRACLEER [Suspect]
     Indication: PULMONARY HYPERTENSION
     Dosage: 62.5 MG, BID, ORAL
     Route: 048
     Dates: start: 20030107, end: 20030213
  2. NIFEDIPINE [Concomitant]
  3. LISINOPRIL [Concomitant]
  4. OXYGEN [Concomitant]
  5. TRACLEER [Suspect]
     Dosage: 125 MG, BID, ORAL
     Route: 048
     Dates: start: 20030214, end: 20030423

REACTIONS (7)
  - ABDOMINAL DISTENSION [None]
  - ALANINE AMINOTRANSFERASE INCREASED [None]
  - ASPARTATE AMINOTRANSFERASE INCREASED [None]
  - ASTHENIA [None]
  - LIVER FUNCTION TEST ABNORMAL [None]
  - LUNG NEOPLASM MALIGNANT [None]
  - PYREXIA [None]
